FAERS Safety Report 18330061 (Version 1)
Quarter: 2020Q3

REPORT INFORMATION
  Report Type: Spontaneous
  Country: US (occurrence: US)
  Receive Date: 20200930
  Receipt Date: 20200930
  Transmission Date: 20201103
  Serious: No
  Sender: FDA-Public Use
  Company Number: US-AKRON, INC.-2092309

PATIENT
  Sex: Female

DRUGS (1)
  1. ZIOPTAN [Suspect]
     Active Substance: TAFLUPROST
     Route: 047
     Dates: end: 20200823

REACTIONS (4)
  - Photophobia [Recovered/Resolved]
  - Eye pruritus [Recovered/Resolved]
  - Eye irritation [Recovering/Resolving]
  - Ocular hyperaemia [Recovered/Resolved]
